FAERS Safety Report 9095836 (Version 3)
Quarter: 2013Q2

REPORT INFORMATION
  Report Type: Report from Study
  Country: GR (occurrence: GR)
  Receive Date: 20130219
  Receipt Date: 20130404
  Transmission Date: 20140414
  Serious: Yes (Hospitalization)
  Sender: FDA-Public Use
  Company Number: GR-ABBOTT-13P-066-1050351-00

PATIENT
  Age: 75 Year
  Sex: Male

DRUGS (2)
  1. HUMIRA [Suspect]
     Indication: ARTHRITIS REACTIVE
     Route: 058
     Dates: start: 20121115, end: 201301
  2. RADIOTHERAPY [Suspect]
     Indication: BREAST CANCER
     Dates: start: 2007

REACTIONS (6)
  - White blood cell count abnormal [Recovered/Resolved]
  - Haematocrit abnormal [Recovered/Resolved]
  - Platelet count abnormal [Recovered/Resolved]
  - Plasma cell myeloma [Recovered/Resolved]
  - Off label use [Unknown]
  - Arthritis reactive [Unknown]
